FAERS Safety Report 6690719-4 (Version None)
Quarter: 2010Q2

REPORT INFORMATION
  Report Type: 
  Country: None (occurrence: None)
  Receive Date: 20100421
  Receipt Date: 20100413
  Transmission Date: 20101027
  Serious: Yes (Hospitalization)
  Sender: FDA-Public Use
  Company Number: JP-ELI_LILLY_AND_COMPANY-JP201002007468

PATIENT
  Sex: Female
  Weight: 70 kg

DRUGS (22)
  1. ALIMTA [Suspect]
     Indication: LUNG ADENOCARCINOMA STAGE III
     Dosage: 780 MG, OTHER
     Route: 042
     Dates: start: 20100203, end: 20100203
  2. PANVITAN [Concomitant]
     Dosage: 1 G, DAILY (1/D)
     Route: 048
     Dates: start: 20100114
  3. METHYCOBAL [Concomitant]
     Dosage: 1 MG, OTHER
     Route: 030
     Dates: start: 20100114
  4. AVELOX [Concomitant]
     Indication: PYREXIA
     Dosage: 400 MG, DAILY (1/D)
     Route: 048
     Dates: start: 20100207, end: 20100209
  5. CALONAL [Concomitant]
     Indication: PYREXIA
     Dosage: 400 G, DAILY (1/D)
     Route: 048
     Dates: start: 20100207, end: 20100218
  6. FAMOTIDINE [Concomitant]
     Indication: PROPHYLAXIS AGAINST GASTROINTESTINAL ULCER
     Dosage: 20 MG, DAILY (1/D)
     Route: 048
     Dates: start: 20100207, end: 20100209
  7. BROACT [Concomitant]
     Indication: INFECTION
     Dosage: 3 G, DAILY (1/D)
     Route: 042
     Dates: start: 20100209, end: 20100216
  8. ORGARAN [Concomitant]
     Indication: DISSEMINATED INTRAVASCULAR COAGULATION
     Dosage: 2 D/F, DAILY (1/D)
     Route: 042
     Dates: start: 20100212, end: 20100216
  9. WARFARIN SODIUM [Concomitant]
     Indication: PROPHYLAXIS
     Dosage: 1 MG, OTHER
     Route: 048
     Dates: start: 20090609, end: 20100218
  10. WARFARIN SODIUM [Concomitant]
     Dosage: 0.5 MG, OTHER
     Route: 048
     Dates: start: 20090609, end: 20100218
  11. PURSENNID [Concomitant]
     Indication: CONSTIPATION
     Dosage: 12 MG, DAILY (1/D)
     Route: 048
     Dates: start: 20090422
  12. ADALAT CR /THA/ [Concomitant]
     Indication: HYPERTENSION
     Dosage: 20 MG, DAILY (1/D)
     Route: 048
     Dates: start: 20090422
  13. TIZANIDINE HCL [Concomitant]
     Indication: MUSCULOSKELETAL STIFFNESS
     Dosage: 3 MG, DAILY (1/D)
     Route: 048
     Dates: start: 20090422
  14. DIOVAN [Concomitant]
     Indication: HYPERTENSION
     Dosage: 160 MG, DAILY (1/D)
     Route: 048
     Dates: start: 20090422
  15. VASOMET [Concomitant]
     Indication: HYPERTENSION
     Dosage: 0.5 MG, DAILY (1/D)
     Route: 048
     Dates: start: 20090422
  16. MAINTATE [Concomitant]
     Indication: HYPERTENSION
     Dosage: 2.5 MG, DAILY (1/D)
     Route: 048
     Dates: start: 20090422
  17. FLUVASTATIN [Concomitant]
     Indication: HYPERLIPIDAEMIA
     Dosage: 20 MG, DAILY (1/D)
     Route: 048
     Dates: start: 20090422
  18. EURODIN [Concomitant]
     Indication: INSOMNIA
     Dosage: 2 MG, DAILY (1/D)
     Route: 048
     Dates: start: 20090422
  19. DEPAS [Concomitant]
     Indication: INSOMNIA
     Dosage: 0.5 MG, DAILY (1/D)
     Route: 048
     Dates: start: 20090422
  20. GRAN [Concomitant]
     Indication: GRANULOCYTE COUNT DECREASED
     Dosage: 75 UG, DAILY (1/D)
     Route: 058
     Dates: start: 20100210, end: 20100212
  21. DECADRON [Concomitant]
     Indication: PROPHYLAXIS
     Dosage: 3.3 MG, DAILY (1/D)
     Route: 040
     Dates: start: 20100203, end: 20100203
  22. GRANISETRON [Concomitant]
     Indication: PROPHYLAXIS OF NAUSEA AND VOMITING
     Dosage: 3 MG, DAILY (1/D)
     Route: 042
     Dates: start: 20100203, end: 20100203

REACTIONS (8)
  - ANAEMIA [None]
  - C-REACTIVE PROTEIN INCREASED [None]
  - DIARRHOEA [None]
  - DISSEMINATED INTRAVASCULAR COAGULATION [None]
  - GRANULOCYTE COUNT DECREASED [None]
  - INFECTION [None]
  - PYREXIA [None]
  - RASH PRURITIC [None]
